FAERS Safety Report 20164382 (Version 1)
Quarter: 2021Q4

REPORT INFORMATION
  Report Type: Spontaneous
  Country: FR (occurrence: FR)
  Receive Date: 20211209
  Receipt Date: 20211209
  Transmission Date: 20220303
  Serious: Yes (Hospitalization)
  Sender: FDA-Public Use
  Company Number: None

PATIENT
  Age: 72 Year
  Sex: Female
  Weight: 79.9 kg

DRUGS (16)
  1. FUROSEMIDE [Suspect]
     Active Substance: FUROSEMIDE
     Dosage: SCORED TABLET,UNIT DOSE:40MILLIGRAM
     Route: 048
  2. ZOLEDRONIC ACID [Suspect]
     Active Substance: ZOLEDRONIC ACID
     Indication: Osteoporosis
     Dosage: 5MILLIGRAM
     Route: 041
     Dates: start: 20210930, end: 20210930
  3. RAMIPRIL [Suspect]
     Active Substance: RAMIPRIL
     Dosage: MYLAN, SCORED TABLET,UNIT DOSE:1DOSAGEFORM
     Route: 048
  4. PREDNISONE [Suspect]
     Active Substance: PREDNISONE
     Dosage: 1DOSAGEFORM
     Route: 048
  5. INNOVAIR [Concomitant]
     Active Substance: BECLOMETHASONE DIPROPIONATE\FORMOTEROL
     Dosage: FORM STRENGTH:100/6 MICROGRAMS / DOSE,UNIT DOSE:2DOSAGEFORM,FORM OF ADMIN:SOLUTION FOR INHALATION IN
     Route: 055
  6. ALBUTEROL [Concomitant]
     Active Substance: ALBUTEROL
     Dosage: FORM OF ADMIN:SUSPENSION FOR INHALATION IN PRESSURIZED VIAL,FORM STRENGTH: 100 MICROGRAMS / DOSE
     Route: 055
  7. GABAPENTIN [Concomitant]
     Active Substance: GABAPENTIN
     Dosage: 2DOSAGEFORM, ARROW GENERIC
     Route: 048
  8. VALPROATE SODIUM [Concomitant]
     Active Substance: VALPROATE SODIUM
     Dosage: PROLONGED-RELEASE SCORED FILM-COATED TABLET,ARROW L.P.
  9. FERROUS SULFATE [Concomitant]
     Active Substance: FERROUS SULFATE
     Dosage: 1DOSAGEFORM
     Route: 048
  10. FUNGIZONE [Concomitant]
     Active Substance: AMPHOTERICIN B
  11. CALCIDOSE [Concomitant]
     Dosage: FORM STRENGTH:500, POWDER FOR ORAL SUSPENSION IN SACHET,UNIT DOSE:2DOSAGEFORM
     Route: 048
  12. VICTOZA [Concomitant]
     Active Substance: LIRAGLUTIDE
     Route: 058
  13. TAHOR [Concomitant]
     Active Substance: ATORVASTATIN CALCIUM
     Dosage: 1DOSAGEFORM
     Route: 048
  14. METFORMIN HYDROCHLORIDE [Concomitant]
     Active Substance: METFORMIN HYDROCHLORIDE
     Dosage: MYLAN,UNIT DOSE:1DOSAGEFORM
     Route: 048
  15. MIRTAZAPINE [Concomitant]
     Active Substance: MIRTAZAPINE
     Dosage: BLUEFISH,UNITDOSE:1DOSAGEFORM
     Route: 048
  16. CELECTOL [Concomitant]
     Active Substance: CELIPROLOL HYDROCHLORIDE
     Dosage: 1DOSAGEFORM
     Route: 048

REACTIONS (1)
  - Acute kidney injury [Recovering/Resolving]

NARRATIVE: CASE EVENT DATE: 20211007
